FAERS Safety Report 17210123 (Version 1)
Quarter: 2019Q4

REPORT INFORMATION
  Report Type: Spontaneous
  Country: US (occurrence: US)
  Receive Date: 20191227
  Receipt Date: 20191227
  Transmission Date: 20200122
  Serious: No
  Sender: FDA-Public Use
  Company Number: US-TEVA-2019-US-1159935

PATIENT
  Sex: Female

DRUGS (17)
  1. VITAMIN D3 [Concomitant]
     Active Substance: CHOLECALCIFEROL
     Dosage: 5000 UNIT
  2. XYZAL [Concomitant]
     Active Substance: LEVOCETIRIZINE DIHYDROCHLORIDE
  3. NAPRELAN [Concomitant]
     Active Substance: NAPROXEN SODIUM
  4. HYDROXYZ HCL [Concomitant]
     Active Substance: HYDROXYZINE HYDROCHLORIDE
  5. AMPYRA [Concomitant]
     Active Substance: DALFAMPRIDINE
  6. CIMETIDINE [Concomitant]
     Active Substance: CIMETIDINE
  7. GOLYTEL [Concomitant]
     Dosage: SOLUTION
  8. ACYCLOVIR. [Concomitant]
     Active Substance: ACYCLOVIR
  9. NUVIGIL [Concomitant]
     Active Substance: ARMODAFINIL
  10. COPAXONE [Concomitant]
     Active Substance: GLATIRAMER ACETATE
  11. COPAXONE [Suspect]
     Active Substance: GLATIRAMER ACETATE
     Indication: MULTIPLE SCLEROSIS
     Route: 058
     Dates: start: 20180921
  12. OMEGA 3 [Concomitant]
     Active Substance: OMEGA-3 FATTY ACIDS
  13. COPAXONE [Concomitant]
     Active Substance: GLATIRAMER ACETATE
  14. DUAVEE [Concomitant]
     Active Substance: BAZEDOXIFENE ACETATE\ESTROGENS, CONJUGATED
     Dosage: 0.45-20
  15. METHYLPRED [Concomitant]
     Active Substance: METHYLPREDNISOLONE
  16. BACLOFEN. [Concomitant]
     Active Substance: BACLOFEN
  17. FLUOXETINE [Concomitant]
     Active Substance: FLUOXETINE HYDROCHLORIDE
     Dosage: 20 MG

REACTIONS (2)
  - Product availability issue [Unknown]
  - Gait disturbance [Not Recovered/Not Resolved]
